FAERS Safety Report 25544417 (Version 1)
Quarter: 2025Q3

REPORT INFORMATION
  Report Type: Spontaneous
  Country: US (occurrence: US)
  Receive Date: 20250711
  Receipt Date: 20250711
  Transmission Date: 20251021
  Serious: No
  Sender: BAYER HEALTHCARE LLC
  Company Number: US-BAYER-2025A090974

PATIENT
  Age: 80 Year
  Sex: Female

DRUGS (2)
  1. ASTEPRO [Suspect]
     Active Substance: AZELASTINE HYDROCHLORIDE
     Indication: Rhinorrhoea
     Dosage: 2 PUFF(S), QD,  IN EACH NOSTRIL
     Route: 045
     Dates: start: 202506
  2. ASTEPRO ALLERGY [Suspect]
     Active Substance: AZELASTINE HYDROCHLORIDE
     Dosage: 2 PUFF(S), QD,  IN EACH NOSTRIL
     Route: 045
     Dates: start: 202506

REACTIONS (2)
  - Incorrect dose administered [Unknown]
  - Cough [None]

NARRATIVE: CASE EVENT DATE: 20250601
